FAERS Safety Report 10305838 (Version 1)
Quarter: 2014Q3

REPORT INFORMATION
  Report Type: Spontaneous
  Country: US (occurrence: None)
  Receive Date: 20140714
  Receipt Date: 20140714
  Transmission Date: 20150326
  Serious: Yes (Other)
  Sender: FDA-Public Use
  Company Number: None

PATIENT
  Sex: Female

DRUGS (12)
  1. ZOFRAN [Concomitant]
     Active Substance: ONDANSETRON HYDROCHLORIDE
  2. AFINITOR [Suspect]
     Active Substance: EVEROLIMUS
     Indication: RENAL CANCER
     Route: 048
     Dates: start: 20140407
  3. PRILOEC [Concomitant]
  4. FLUOXETINE [Concomitant]
     Active Substance: FLUOXETINE\FLUOXETINE HYDROCHLORIDE
  5. SYNTHROID [Concomitant]
     Active Substance: LEVOTHYROXINE SODIUM
  6. TRIAMCINOLONE [Concomitant]
     Active Substance: TRIAMCINOLONE
  7. LOPID [Concomitant]
     Active Substance: GEMFIBROZIL
  8. VENTOLIN [Concomitant]
     Active Substance: ALBUTEROL SULFATE
  9. NORVASC [Concomitant]
     Active Substance: AMLODIPINE BESYLATE
  10. TENORMIN [Concomitant]
     Active Substance: ATENOLOL
  11. ADVAIR HFA [Concomitant]
     Active Substance: FLUTICASONE PROPIONATE\SALMETEROL XINAFOATE
  12. PRAVASTATIN [Concomitant]
     Active Substance: PRAVASTATIN\PRAVASTATIN SODIUM

REACTIONS (6)
  - Nausea [None]
  - Malaise [None]
  - Blood potassium increased [None]
  - Blood cholesterol increased [None]
  - Decreased appetite [None]
  - Blood glucose increased [None]
